FAERS Safety Report 6970344-8 (Version None)
Quarter: 2010Q3

REPORT INFORMATION
  Report Type: 
  Country: None (occurrence: None)
  Receive Date: 20100908
  Receipt Date: 20100115
  Transmission Date: 20110219
  Serious: Yes (Death, Other)
  Sender: FDA-Public Use
  Company Number: GB-BAXTER-2008BH010377

PATIENT
  Age: 7 Year
  Sex: Male

DRUGS (6)
  1. FEIBA [Suspect]
     Indication: HAEMOPHILIA
     Route: 065
     Dates: start: 20080101
  2. FEIBA [Suspect]
     Indication: FACTOR VIII INHIBITION
     Route: 065
     Dates: start: 20080101
  3. KOGENATE FS [Suspect]
     Indication: HAEMOPHILIA
     Route: 065
     Dates: start: 20070301, end: 20080711
  4. FANDHI [Suspect]
     Indication: PRODUCT USED FOR UNKNOWN INDICATION
     Dates: start: 20080101
  5. ORAMORPH SR [Concomitant]
     Indication: PAIN
     Route: 048
  6. TRANEXAMIC ACID [Concomitant]
     Indication: PLASMIN INHIBITOR DECREASED
     Route: 048

REACTIONS (2)
  - DRUG INEFFECTIVE [None]
  - PNEUMONIA [None]
